FAERS Safety Report 18734802 (Version 1)
Quarter: 2021Q1

REPORT INFORMATION
  Report Type: Spontaneous
  Country: US (occurrence: US)
  Receive Date: 20210113
  Receipt Date: 20210113
  Transmission Date: 20210419
  Serious: Yes (Other)
  Sender: FDA-Public Use
  Company Number: US-PFIZER INC-2021006282

PATIENT
  Age: 67 Year
  Sex: Male

DRUGS (4)
  1. DIAZEPAM. [Suspect]
     Active Substance: DIAZEPAM
     Indication: GENERALISED ANXIETY DISORDER
     Dosage: 10 MG, 3X/DAY
  2. NORCO [Suspect]
     Active Substance: ACETAMINOPHEN\HYDROCODONE BITARTRATE
     Indication: BACK PAIN
     Dosage: UNK, AS NEEDED
  3. DIAZEPAM. [Suspect]
     Active Substance: DIAZEPAM
     Dosage: ONE?THIRD OF THE DOSE
  4. NORCO [Suspect]
     Active Substance: ACETAMINOPHEN\HYDROCODONE BITARTRATE
     Indication: INTERVERTEBRAL DISC PROTRUSION

REACTIONS (3)
  - Withdrawal syndrome [Unknown]
  - Delirium [Recovering/Resolving]
  - Atrial fibrillation [Unknown]
